FAERS Safety Report 11668831 (Version 1)
Quarter: 2015Q4

REPORT INFORMATION
  Report Type: Spontaneous
  Country: AU (occurrence: AU)
  Receive Date: 20151027
  Receipt Date: 20151027
  Transmission Date: 20160304
  Serious: Yes (Other)
  Sender: FDA-Public Use
  Company Number: AU-009507513-1509AUS008966

PATIENT
  Age: 35 Year
  Sex: Female
  Weight: 72 kg

DRUGS (2)
  1. IMPLANON [Suspect]
     Active Substance: ETONOGESTREL
     Indication: CONTRACEPTION
     Dosage: UNK
     Route: 059
     Dates: start: 20150831, end: 20150916
  2. IMPLANON [Suspect]
     Active Substance: ETONOGESTREL
     Dosage: UNK
     Route: 059
     Dates: start: 20150916

REACTIONS (4)
  - Device expulsion [Recovered/Resolved]
  - Inappropriate schedule of drug administration [Unknown]
  - Implant site infection [Unknown]
  - Device deployment issue [Recovered/Resolved]

NARRATIVE: CASE EVENT DATE: 20150831
